FAERS Safety Report 8168112-7 (Version None)
Quarter: 2012Q1

REPORT INFORMATION
  Report Type: 
  Country: None (occurrence: None)
  Receive Date: 20120227
  Receipt Date: 20120222
  Transmission Date: 20120608
  Serious: Yes (Hospitalization, Other)
  Sender: FDA-Public Use
  Company Number: JP-EISAI INC-E2020-10377-SPO-JP

PATIENT
  Age: 93 Year
  Sex: Female

DRUGS (2)
  1. ARICEPT [Suspect]
     Route: 048
     Dates: start: 20111201, end: 20120101
  2. ARICEPT [Suspect]
     Indication: DEMENTIA ALZHEIMER'S TYPE
     Dosage: UNKNOWN
     Route: 048
     Dates: start: 20060101, end: 20111201

REACTIONS (4)
  - DELIRIUM [None]
  - GAIT DISTURBANCE [None]
  - AGITATION [None]
  - PARKINSONISM [None]
